FAERS Safety Report 24653234 (Version 2)
Quarter: 2024Q4

REPORT INFORMATION
  Report Type: Spontaneous
  Country: RO (occurrence: RO)
  Receive Date: 20241122
  Receipt Date: 20241127
  Transmission Date: 20250115
  Serious: Yes (Death, Hospitalization, Other)
  Sender: NOVARTIS
  Company Number: RO-002147023-NVSC2024RO223933

PATIENT
  Age: 37 Year
  Sex: Male

DRUGS (8)
  1. RUXOLITINIB [Suspect]
     Active Substance: RUXOLITINIB
     Indication: Myelofibrosis
     Dosage: UNK (2 X 5 MG/DAY)
     Route: 065
     Dates: start: 201504, end: 201508
  2. RUXOLITINIB [Suspect]
     Active Substance: RUXOLITINIB
     Dosage: UNK (2 X 10  MG/DAY)
     Route: 065
     Dates: start: 201508
  3. EXJADE [Suspect]
     Active Substance: DEFERASIROX
     Indication: Product used for unknown indication
     Dosage: 500 MG, BID
     Route: 065
     Dates: start: 201504
  4. HYDREA [Concomitant]
     Active Substance: HYDROXYUREA
     Indication: Product used for unknown indication
     Dosage: 500 MG, QD (2 TABLETS/DAY)
     Route: 065
  5. FOLIC ACID [Concomitant]
     Active Substance: FOLIC ACID
     Indication: Product used for unknown indication
     Dosage: 5 MG, QD (2  TABLETS/DAY)
     Route: 065
  6. ALLOPURINOL [Concomitant]
     Active Substance: ALLOPURINOL
     Indication: Product used for unknown indication
     Dosage: 100 MG, QD (2  TABLETS/DAY)
     Route: 065
  7. MEDROL [Concomitant]
     Active Substance: METHYLPREDNISOLONE
     Indication: Product used for unknown indication
     Dosage: 40 MG
     Route: 065
     Dates: start: 201504
  8. MEDROL [Concomitant]
     Active Substance: METHYLPREDNISOLONE
     Dosage: 16 MG, QD (2  TABLETS/DAY)
     Route: 065
     Dates: start: 201504

REACTIONS (13)
  - General physical health deterioration [Fatal]
  - Pneumonia [Fatal]
  - Acute respiratory failure [Fatal]
  - Asthenia [Unknown]
  - Pallor [Unknown]
  - Anal abscess [Recovered/Resolved]
  - Anaemia [Unknown]
  - Thrombocytopenia [Unknown]
  - Leukocytosis [Unknown]
  - Neutrophilia [Unknown]
  - Pyrexia [Recovered/Resolved]
  - Fatigue [Unknown]
  - Vertigo [Unknown]

NARRATIVE: CASE EVENT DATE: 20150501
